FAERS Safety Report 23422573 (Version 3)
Quarter: 2024Q2

REPORT INFORMATION
  Report Type: Report from Study
  Country: IL (occurrence: IL)
  Receive Date: 20240119
  Receipt Date: 20240529
  Transmission Date: 20240716
  Serious: Yes (Other)
  Sender: FDA-Public Use
  Company Number: IL-002147023-NVSC2024IL008120

PATIENT
  Age: 16 Year
  Sex: Female
  Weight: 55 kg

DRUGS (4)
  1. MEKINIST [Suspect]
     Active Substance: TRAMETINIB DIMETHYL SULFOXIDE
     Indication: Neurofibromatosis
     Dosage: 1 MG, QD
     Route: 048
     Dates: start: 20221213, end: 20231204
  2. MEKINIST [Suspect]
     Active Substance: TRAMETINIB DIMETHYL SULFOXIDE
     Indication: Glioma
     Dosage: UNK
     Route: 048
     Dates: start: 20240101
  3. MEKINIST [Suspect]
     Active Substance: TRAMETINIB DIMETHYL SULFOXIDE
     Dosage: UNK, (FULL DOSE)
     Route: 048
     Dates: start: 20240429
  4. KEPPRA [Concomitant]
     Active Substance: LEVETIRACETAM
     Indication: Product used for unknown indication
     Dosage: 250 MG MORNING 500 MG EVENING
     Route: 065

REACTIONS (10)
  - Arthritis [Recovered/Resolved]
  - Arthralgia [Recovered/Resolved]
  - Joint swelling [Recovered/Resolved]
  - Erythema [Recovered/Resolved]
  - Gait disturbance [Recovered/Resolved]
  - Paronychia [Recovered/Resolved with Sequelae]
  - Oedema [Recovered/Resolved]
  - Onychomycosis [Not Recovered/Not Resolved]
  - Rash [Unknown]
  - Paronychia [Unknown]

NARRATIVE: CASE EVENT DATE: 20231201
